FAERS Safety Report 10204576 (Version 2)
Quarter: 2014Q2

REPORT INFORMATION
  Report Type: Report from Study
  Country: AR (occurrence: AR)
  Receive Date: 20140529
  Receipt Date: 20140603
  Transmission Date: 20141212
  Serious: Yes (Life-Threatening, Other)
  Sender: FDA-Public Use
  Company Number: PHHY2014AR065028

PATIENT
  Age: 69 Year
  Sex: Male

DRUGS (4)
  1. ONBREZ [Suspect]
     Indication: CHRONIC OBSTRUCTIVE PULMONARY DISEASE
     Dosage: 1 DF, QD
     Route: 055
     Dates: start: 2011
  2. ONBREZ [Suspect]
     Dosage: UNK
  3. ANTIBIOTICS [Concomitant]
     Dosage: UNK UKN, UNK
  4. CORTICOSTEROIDS [Concomitant]
     Dosage: UNK UKN, UNK

REACTIONS (6)
  - Apparent death [Unknown]
  - Dyspnoea [Unknown]
  - Lung infection [Unknown]
  - Laryngitis [Unknown]
  - Asphyxia [Unknown]
  - Feeling of despair [Unknown]
